FAERS Safety Report 19175237 (Version 2)
Quarter: 2021Q2

REPORT INFORMATION
  Report Type: Report from Study
  Country: DE (occurrence: DE)
  Receive Date: 20210423
  Receipt Date: 20210504
  Transmission Date: 20210717
  Serious: No
  Sender: FDA-Public Use
  Company Number: DE-BRISTOL-MYERS SQUIBB COMPANY-BMS-2021-029419

PATIENT
  Age: 64 Year
  Sex: Female

DRUGS (2)
  1. NIVOLUMAB [Suspect]
     Active Substance: NIVOLUMAB
     Indication: MALIGNANT MELANOMA
     Dosage: 360 (UNITS NOT SPECIFIED); EVERY 3 WEEKS
     Route: 065
     Dates: start: 20210301, end: 20210301
  2. YERVOY [Suspect]
     Active Substance: IPILIMUMAB
     Indication: MALIGNANT MELANOMA
     Dosage: 68.94 (UNITS UNSPECIFIED), EVERY 3 WEEKS
     Route: 065
     Dates: start: 20210301, end: 20210301

REACTIONS (1)
  - Off label use [Unknown]
